FAERS Safety Report 15917374 (Version 1)
Quarter: 2019Q1

REPORT INFORMATION
  Report Type: Spontaneous
  Country: US (occurrence: US)
  Receive Date: 20190205
  Receipt Date: 20190205
  Transmission Date: 20190417
  Serious: No
  Sender: FDA-Public Use
  Company Number: US-ASTRAZENECA-2019SE17074

PATIENT
  Sex: Female
  Weight: 63.5 kg

DRUGS (3)
  1. QUETIAPINE. [Suspect]
     Active Substance: QUETIAPINE
     Indication: BIPOLAR I DISORDER
     Route: 048
     Dates: start: 201811, end: 201901
  2. DEPAKOTE [Concomitant]
     Active Substance: DIVALPROEX SODIUM
     Indication: SCHIZOPHRENIA
     Dosage: DAILY
     Route: 048
     Dates: start: 201811, end: 201901
  3. QUETIAPINE. [Suspect]
     Active Substance: QUETIAPINE
     Indication: EPILEPSY
     Route: 048
     Dates: start: 201811, end: 201901

REACTIONS (9)
  - Panic attack [Not Recovered/Not Resolved]
  - Personality change [Not Recovered/Not Resolved]
  - Off label use [Unknown]
  - Impulse-control disorder [Not Recovered/Not Resolved]
  - Agitation [Not Recovered/Not Resolved]
  - Anger [Not Recovered/Not Resolved]
  - Mood altered [Not Recovered/Not Resolved]
  - Logorrhoea [Recovered/Resolved]
  - Psychomotor hyperactivity [Not Recovered/Not Resolved]
